FAERS Safety Report 5317489-6 (Version None)
Quarter: 2007Q2

REPORT INFORMATION
  Report Type: 
  Country: None (occurrence: None)
  Receive Date: 20070502
  Receipt Date: 20070502
  Transmission Date: 20071010
  Serious: Yes (Hospitalization)
  Sender: FDA-Public Use
  Company Number: None

PATIENT
  Sex: Female
  Weight: 59 kg

DRUGS (3)
  1. CISPLATIN [Suspect]
     Dosage: 84 MG
  2. TAXOL [Suspect]
     Dosage: 185 MG
  3. NORCO 5/325 [Concomitant]

REACTIONS (3)
  - DEHYDRATION [None]
  - HYPOTENSION [None]
  - ORAL INTAKE REDUCED [None]
